FAERS Safety Report 12526528 (Version 1)
Quarter: 2016Q3

REPORT INFORMATION
  Report Type: Report from Study
  Country: US (occurrence: US)
  Receive Date: 20160705
  Receipt Date: 20160705
  Transmission Date: 20161109
  Serious: No
  Sender: FDA-Public Use
  Company Number: US-AMGEN-USASL2016084107

PATIENT
  Age: 67 Year
  Sex: Female

DRUGS (1)
  1. ENBREL [Suspect]
     Active Substance: ETANERCEPT
     Indication: RHEUMATOID ARTHRITIS
     Dosage: 25 MG, TWICE A WEEK
     Route: 065
     Dates: start: 2015

REACTIONS (8)
  - Peripheral swelling [Unknown]
  - Pain in extremity [Unknown]
  - Palpitations [Unknown]
  - Asthenia [Unknown]
  - Cardiac disorder [Unknown]
  - Feeling cold [Unknown]
  - Joint swelling [Unknown]
  - Arthralgia [Unknown]
